FAERS Safety Report 6894814-6 (Version None)
Quarter: 2010Q3

REPORT INFORMATION
  Report Type: 
  Country: None (occurrence: None)
  Receive Date: 20100730
  Receipt Date: 20100730
  Transmission Date: 20110219
  Serious: No
  Sender: FDA-Public Use
  Company Number: None

PATIENT
  Sex: Male
  Weight: 86.1834 kg

DRUGS (1)
  1. ATENOLOL [Suspect]
     Indication: HEART RATE
     Dosage: 25MG PER DAY ORAL
     Route: 048
     Dates: start: 20100716

REACTIONS (2)
  - HEART RATE INCREASED [None]
  - PRODUCT SUBSTITUTION ISSUE [None]
